FAERS Safety Report 4723416-2 (Version None)
Quarter: 2005Q3

REPORT INFORMATION
  Report Type: 
  Country: None (occurrence: None)
  Receive Date: 20050725
  Receipt Date: 20021113
  Transmission Date: 20060218
  Serious: Yes (Other)
  Sender: FDA-Public Use
  Company Number: PHFR2002GB04377

PATIENT
  Age: 61 Year
  Sex: Female

DRUGS (2)
  1. LANSOPRAZOLE [Concomitant]
  2. CLOZARIL [Suspect]
     Indication: SCHIZOPHRENIA
     Dosage: 35MG/DAY
     Route: 048
     Dates: start: 19971111

REACTIONS (5)
  - CHRONIC LYMPHOCYTIC LEUKAEMIA [None]
  - DRUG LEVEL BELOW THERAPEUTIC [None]
  - LYMPHOCYTE COUNT INCREASED [None]
  - OVERWEIGHT [None]
  - WHITE BLOOD CELL COUNT INCREASED [None]
